FAERS Safety Report 24328694 (Version 2)
Quarter: 2024Q4

REPORT INFORMATION
  Report Type: Report from Study
  Country: US (occurrence: US)
  Receive Date: 20240917
  Receipt Date: 20241018
  Transmission Date: 20250115
  Serious: Yes (Other)
  Sender: ABBVIE
  Company Number: US-ABBVIE-5922455

PATIENT
  Sex: Male

DRUGS (1)
  1. VENCLEXTA [Suspect]
     Active Substance: VENETOCLAX
     Indication: Chronic lymphocytic leukaemia
     Dosage: FORM STRENGTH: 100 MG FOUR TABLETS WITH FOOD AND A FULL GLASS OF WATER
     Route: 048
     Dates: end: 2024

REACTIONS (3)
  - Pleural effusion [Unknown]
  - Therapeutic product effect decreased [Unknown]
  - Diarrhoea [Not Recovered/Not Resolved]
